FAERS Safety Report 8175044-7 (Version None)
Quarter: 2012Q1

REPORT INFORMATION
  Report Type: 
  Country: None (occurrence: None)
  Receive Date: 20120229
  Receipt Date: 20120221
  Transmission Date: 20120608
  Serious: Yes (Hospitalization, Other)
  Sender: FDA-Public Use
  Company Number: DE-ASTRAZENECA-2012SE12320

PATIENT
  Age: 49 Year
  Sex: Male

DRUGS (9)
  1. TRIMIPRAMINE MALEATE [Interacting]
     Route: 048
     Dates: start: 20111020, end: 20111031
  2. PANTOPRAZOLE [Concomitant]
     Route: 048
  3. TRIMIPRAMINE MALEATE [Interacting]
     Route: 048
     Dates: start: 20111101, end: 20111117
  4. METOPROLOL SUCCINATE [Suspect]
     Route: 048
  5. BUPROPION HYDROCHLORIDE [Interacting]
     Route: 048
     Dates: start: 20111108, end: 20111108
  6. ASPIRIN [Concomitant]
     Route: 048
  7. BUPROPION HYDROCHLORIDE [Interacting]
     Route: 048
     Dates: start: 20111102, end: 20111107
  8. BUPROPION HYDROCHLORIDE [Interacting]
     Route: 048
     Dates: start: 20111026, end: 20111101
  9. TRIMIPRAMINE MALEATE [Interacting]
     Route: 048
     Dates: start: 20111019, end: 20111019

REACTIONS (2)
  - DYSKINESIA [None]
  - DRUG INTERACTION [None]
